FAERS Safety Report 5646183-7 (Version None)
Quarter: 2008Q1

REPORT INFORMATION
  Report Type: 
  Country: None (occurrence: None)
  Receive Date: 20080131
  Receipt Date: 20071211
  Transmission Date: 20080703
  Serious: No
  Sender: FDA-Public Use
  Company Number: 163-21880-07120661

PATIENT
  Age: 80 Year
  Sex: Female

DRUGS (12)
  1. REVLIMID [Suspect]
     Indication: MULTIPLE MYELOMA
     Dosage: 25 MG, DAILY FOR 21D28D, ORAL; 5 MG, DAILY FOR 21/D28D, ORAL
     Route: 048
     Dates: start: 20071023, end: 20071102
  2. REVLIMID [Suspect]
     Indication: MULTIPLE MYELOMA
     Dosage: 25 MG, DAILY FOR 21D28D, ORAL; 5 MG, DAILY FOR 21/D28D, ORAL
     Route: 048
     Dates: start: 20071119
  3. CHERATUSSIN AC (CHERATUSSIN AC) [Concomitant]
  4. AMITRIPTLINE HCL [Concomitant]
  5. FUROSEMIDE [Concomitant]
  6. K-TAB [Concomitant]
  7. OXYBUTYNIN CHLORIDE [Concomitant]
  8. CEFUROXIME [Concomitant]
  9. OXYCODONE HCL [Concomitant]
  10. ATENOLOL [Concomitant]
  11. LACTULOSE [Concomitant]
  12. DEXAMETHASONE TAB [Concomitant]

REACTIONS (1)
  - LIVER FUNCTION TEST ABNORMAL [None]
